FAERS Safety Report 5477798-7 (Version None)
Quarter: 2007Q4

REPORT INFORMATION
  Report Type: 
  Country: None (occurrence: None)
  Receive Date: 20071003
  Receipt Date: 20071003
  Transmission Date: 20080405
  Serious: No
  Sender: FDA-Public Use
  Company Number: None

PATIENT
  Sex: Female

DRUGS (2)
  1. FOSAMAX [Suspect]
     Dosage: ORAL
     Route: 048
  2. ACTONEL [Suspect]
     Dosage: ORAL
     Route: 048

REACTIONS (2)
  - LETHARGY [None]
  - PAIN [None]
